FAERS Safety Report 5536150-6 (Version None)
Quarter: 2007Q4

REPORT INFORMATION
  Report Type: 
  Country: None (occurrence: None)
  Receive Date: 20071206
  Receipt Date: 20071201
  Transmission Date: 20080405
  Serious: Yes (Other)
  Sender: FDA-Public Use
  Company Number: US-PFIZER INC-2007100515

PATIENT
  Sex: Female
  Weight: 81.818 kg

DRUGS (1)
  1. CELEBREX [Suspect]
     Indication: INFLAMMATION

REACTIONS (6)
  - ABDOMINAL PAIN [None]
  - DIARRHOEA [None]
  - DRUG INEFFECTIVE [None]
  - FLATULENCE [None]
  - JOINT SWELLING [None]
  - KNEE OPERATION [None]
